FAERS Safety Report 9890782 (Version 2)
Quarter: 2014Q1

REPORT INFORMATION
  Report Type: Spontaneous
  Country: DE (occurrence: None)
  Receive Date: 20140210
  Receipt Date: 20140218
  Transmission Date: 20141002
  Serious: Yes (Other)
  Sender: FDA-Public Use
  Company Number: AUR-APL-2014-00968

PATIENT
  Age: 18 Year
  Sex: Male

DRUGS (4)
  1. FLUCONAZOLE [Suspect]
     Indication: ELECTROCARDIOGRAM QT PROLONGED
  2. NEUROCIL [Suspect]
     Indication: AGITATION
  3. TACROLIMUS [Suspect]
     Indication: ELECTROCARDIOGRAM QT PROLONGED
  4. LORAZEPAM (LORAZEPAM) [Concomitant]

REACTIONS (6)
  - Electrocardiogram QT prolonged [None]
  - Ventricular tachycardia [None]
  - Cardiac arrest [None]
  - Blood potassium decreased [None]
  - Blood magnesium increased [None]
  - Long QT syndrome [None]
